FAERS Safety Report 17083556 (Version 2)
Quarter: 2020Q1

REPORT INFORMATION
  Report Type: Not Available
  Country: IT (occurrence: IT)
  Receive Date: 20191127
  Receipt Date: 20200205
  Transmission Date: 20200409
  Serious: Yes (Hospitalization)
  Sender: FDA-Public Use
  Company Number: IT-ANIPHARMA-2019-IT-000098

PATIENT
  Age: 58 Year
  Sex: Male

DRUGS (2)
  1. CANDESARTAN CILEXETIL AND HYDROCHLOROTHIAZIDE [Suspect]
     Active Substance: CANDESARTAN CILEXETIL\HYDROCHLOROTHIAZIDE
     Indication: HYPERTENSION
     Dosage: DOSE TEXT: 32/25 MILLIGRAM, UNKNOWN
     Route: 048
     Dates: start: 20190101
  2. SOLDESAM [Suspect]
     Active Substance: DEXAMETHASONE
     Dosage: 0 / 1 DF UNK
     Route: 030
     Dates: start: 20191010, end: 20191010

REACTIONS (2)
  - Drug interaction [Recovered/Resolved]
  - Asthenia [Recovered/Resolved]

NARRATIVE: CASE EVENT DATE: 20191010
